FAERS Safety Report 10445662 (Version 1)
Quarter: 2014Q3

REPORT INFORMATION
  Report Type: Spontaneous
  Country: US (occurrence: US)
  Receive Date: 20140910
  Receipt Date: 20140910
  Transmission Date: 20150326
  Serious: Yes (Other)
  Sender: FDA-Public Use
  Company Number: US-GLAXOSMITHKLINE-A1088099A

PATIENT
  Age: 33 Year
  Sex: Female

DRUGS (12)
  1. BENLYSTA [Suspect]
     Active Substance: BELIMUMAB
     Indication: SYSTEMIC LUPUS ERYTHEMATOSUS
     Route: 042
  2. VITAMINS [Concomitant]
     Active Substance: VITAMINS
  3. PREDNISONE. [Concomitant]
     Active Substance: PREDNISONE
  4. NORCO [Concomitant]
     Active Substance: ACETAMINOPHEN\HYDROCODONE BITARTRATE
  5. PLAQUENIL [Concomitant]
     Active Substance: HYDROXYCHLOROQUINE SULFATE
  6. FAMOTIDINE. [Concomitant]
     Active Substance: FAMOTIDINE
  7. LYRICA [Concomitant]
     Active Substance: PREGABALIN
  8. PROPRANOLOL [Concomitant]
     Active Substance: PROPRANOLOL\PROPRANOLOL HYDROCHLORIDE
  9. IMURAN [Concomitant]
     Active Substance: AZATHIOPRINE
  10. TRAMADOL [Concomitant]
     Active Substance: TRAMADOL
  11. CLARITIN [Concomitant]
     Active Substance: LORATADINE
  12. ANTIEMETICS [Concomitant]
     Active Substance: UNSPECIFIED INGREDIENT

REACTIONS (8)
  - Eating disorder [Unknown]
  - Fatigue [Unknown]
  - Stress [Unknown]
  - Malaise [Unknown]
  - Pain [Unknown]
  - Somnolence [Unknown]
  - Systemic lupus erythematosus [Not Recovered/Not Resolved]
  - Decreased appetite [Unknown]

NARRATIVE: CASE EVENT DATE: 20140213
